FAERS Safety Report 5402143-2 (Version None)
Quarter: 2007Q3

REPORT INFORMATION
  Report Type: 
  Country: None (occurrence: None)
  Receive Date: 20070801
  Receipt Date: 20070727
  Transmission Date: 20080115
  Serious: Yes (Life-Threatening, Hospitalization)
  Sender: FDA-Public Use
  Company Number: US-BAYER-200712331BWH

PATIENT
  Age: 38 Year
  Sex: Female

DRUGS (5)
  1. NIMOTOP [Suspect]
     Indication: SUBARACHNOID HAEMORRHAGE
     Route: 042
     Dates: start: 20070717
  2. NIMOTOP [Suspect]
  3. NICARDIPINE HYDROCHLORIDE [Concomitant]
     Route: 042
  4. MANNITOL [Concomitant]
     Route: 042
  5. ALBUMIN (HUMAN) [Concomitant]
     Route: 042

REACTIONS (3)
  - BLOOD PRESSURE DECREASED [None]
  - HEART RATE DECREASED [None]
  - INCORRECT ROUTE OF DRUG ADMINISTRATION [None]
